FAERS Safety Report 16778130 (Version 3)
Quarter: 2019Q4

REPORT INFORMATION
  Report Type: Spontaneous
  Country: DE (occurrence: DE)
  Receive Date: 20190905
  Receipt Date: 20191025
  Transmission Date: 20200122
  Serious: Yes (Hospitalization, Other)
  Sender: FDA-Public Use
  Company Number: DE-009507513-1908DEU009866

PATIENT
  Age: 36 Year
  Sex: Female

DRUGS (6)
  1. TRIPTORELIN ACETATE [Suspect]
     Active Substance: TRIPTORELIN ACETATE
     Indication: OVULATION INDUCTION
     Dosage: 0.2 MG, 1 TIME DAILY
     Route: 058
     Dates: start: 20190210, end: 20190210
  2. GONADOTROPIN, CHORIONIC [Suspect]
     Active Substance: CHORIOGONADOTROPIN ALFA
     Indication: ASSISTED FERTILISATION
     Dosage: 1500 IU, 1 TIME DAILY
     Route: 058
     Dates: start: 20190218, end: 20190218
  3. PROGESTERONE. [Suspect]
     Active Substance: PROGESTERONE
     Indication: ASSISTED FERTILISATION
     Dosage: 100 MG, 3 TIMES DAILY
     Route: 067
     Dates: start: 20190214, end: 20190227
  4. ORGALUTRAN [Suspect]
     Active Substance: GANIRELIX ACETATE
     Indication: ASSISTED REPRODUCTIVE TECHNOLOGY
     Dosage: 0.25 MG, 1 TIME DAILY
     Route: 058
     Dates: start: 20190205, end: 20190210
  5. PUREGON PEN [Suspect]
     Active Substance: FOLLITROPIN
     Indication: CONTROLLED OVARIAN STIMULATION
     Dosage: 100-125 IU, 1 TIME DAILY
     Route: 058
     Dates: start: 20190131, end: 20190210
  6. PROGYNOVA [Suspect]
     Active Substance: ESTRADIOL VALERATE
     Indication: ASSISTED REPRODUCTIVE TECHNOLOGY
     Dosage: 4 MG, 1 TIME DAILY
     Route: 048
     Dates: start: 20190214, end: 20190227

REACTIONS (3)
  - Off label use [Unknown]
  - Product use in unapproved indication [Unknown]
  - Ovarian hyperstimulation syndrome [Recovered/Resolved]

NARRATIVE: CASE EVENT DATE: 20190220
